FAERS Safety Report 24337491 (Version 2)
Quarter: 2024Q4

REPORT INFORMATION
  Report Type: Spontaneous
  Country: JP (occurrence: JP)
  Receive Date: 20240919
  Receipt Date: 20241025
  Transmission Date: 20250115
  Serious: Yes (Hospitalization)
  Sender: ROCHE
  Company Number: JP-CHUGAI-2024031955

PATIENT
  Age: 63 Year
  Sex: Female
  Weight: 71 kg

DRUGS (3)
  1. ENSPRYNG [Suspect]
     Active Substance: SATRALIZUMAB-MWGE
     Indication: Neuromyelitis optica spectrum disorder
     Dosage: 120 MILLIGRAM, ONCE/4WEEKS
     Route: 050
  2. PREDNISOLONE [Concomitant]
     Active Substance: PREDNISOLONE
  3. VONOPRAZAN FUMARATE [Concomitant]
     Active Substance: VONOPRAZAN FUMARATE

REACTIONS (1)
  - Neuromyelitis optica spectrum disorder [Not Recovered/Not Resolved]

NARRATIVE: CASE EVENT DATE: 20220729
